FAERS Safety Report 10440746 (Version 1)
Quarter: 2014Q3

REPORT INFORMATION
  Report Type: Spontaneous
  Country: US (occurrence: None)
  Receive Date: 20140908
  Receipt Date: 20140908
  Transmission Date: 20150326
  Serious: Yes (Hospitalization)
  Sender: FDA-Public Use
  Company Number: None

PATIENT
  Age: 5 Year
  Weight: 20 kg

DRUGS (1)
  1. AFINITOR [Suspect]
     Active Substance: EVEROLIMUS
     Indication: CONVULSION
     Dosage: 1 PILL, QD, ORAL
     Route: 048

REACTIONS (1)
  - Convulsion [None]

NARRATIVE: CASE EVENT DATE: 20140823
